FAERS Safety Report 14961015 (Version 2)
Quarter: 2018Q3

REPORT INFORMATION
  Report Type: Spontaneous
  Country: US (occurrence: US)
  Receive Date: 20180531
  Receipt Date: 20180815
  Transmission Date: 20181010
  Serious: Yes (Other)
  Sender: FDA-Public Use
  Company Number: US-ASTRAZENECA-2018SE70088

PATIENT
  Age: 47 Year
  Sex: Female
  Weight: 88.5 kg

DRUGS (92)
  1. PRILOSEC [Suspect]
     Active Substance: OMEPRAZOLE MAGNESIUM
     Indication: GASTROOESOPHAGEAL REFLUX DISEASE
     Route: 048
     Dates: start: 2000, end: 2012
  2. PRILOSEC [Suspect]
     Active Substance: OMEPRAZOLE MAGNESIUM
     Indication: GASTROOESOPHAGEAL REFLUX DISEASE
     Dosage: GENERIC OMEPRAZOLE
     Route: 048
     Dates: start: 1999, end: 2012
  3. HYDROCHLOROTHIAZIDE. [Concomitant]
     Active Substance: HYDROCHLOROTHIAZIDE
     Route: 048
     Dates: start: 20050123
  4. HYDROCODONE?ACETAMINOPHEN [Concomitant]
     Active Substance: ACETAMINOPHEN\HYDROCODONE
     Dosage: SOLUTION 7.5?325 MG/15 ML? TAKE AS NEEDED
     Route: 048
  5. CELECOXIB. [Concomitant]
     Active Substance: CELECOXIB
     Route: 048
     Dates: start: 20050307
  6. METFORMIN [Concomitant]
     Active Substance: METFORMIN HYDROCHLORIDE
     Dosage: GLUCOPHAGE? TAKE ONE HALF TABLET EACH DAY
     Route: 048
     Dates: start: 20011206
  7. BECONASE AQ [Concomitant]
     Active Substance: BECLOMETHASONE DIPROPIONATE MONOHYDRATE
     Dosage: NASAL SPRAY? USE 2 PUFFS IN EACH NOSTRIL BID
     Dates: start: 20000816
  8. ATENOLOL. [Concomitant]
     Active Substance: ATENOLOL
     Route: 048
     Dates: start: 20000611
  9. ZYRTEC [Concomitant]
     Active Substance: CETIRIZINE HYDROCHLORIDE
     Route: 048
     Dates: start: 20101118
  10. VALSARTAN. [Concomitant]
     Active Substance: VALSARTAN
     Route: 048
  11. VENLAFAXINE HYDROCHLORIDE. [Concomitant]
     Active Substance: VENLAFAXINE HYDROCHLORIDE
     Dosage: EFFEXOR XR
     Route: 048
     Dates: start: 20050329
  12. PLAVIX [Concomitant]
     Active Substance: CLOPIDOGREL BISULFATE
     Dosage: CLOPIDOGREL
     Route: 048
     Dates: start: 20050329
  13. AMBIEN [Concomitant]
     Active Substance: ZOLPIDEM TARTRATE
     Route: 048
  14. FELODIPINE. [Concomitant]
     Active Substance: FELODIPINE
     Indication: BLOOD PRESSURE ABNORMAL
     Route: 048
     Dates: start: 20110531
  15. TRAMADOL HYDROCHLORIDE. [Concomitant]
     Active Substance: TRAMADOL HYDROCHLORIDE
     Dosage: ULTRAM EQ? T 1?2 TABS PO QID PP
     Route: 048
     Dates: start: 20110614
  16. DULERA [Concomitant]
     Active Substance: FORMOTEROL FUMARATE DIHYDRATE\MOMETASONE FUROATE
     Dosage: 00?5MCG/ACT AEROSOL SOLN, INHALATION AS NEEDED
     Route: 048
  17. PROMETHAZINE [Concomitant]
     Active Substance: PROMETHAZINE\PROMETHAZINE HYDROCHLORIDE
     Dosage: T1 TAB Q4?6H PRN
     Route: 048
     Dates: start: 20060612
  18. METOCLOPRAMIDE. [Concomitant]
     Active Substance: METOCLOPRAMIDE
     Indication: NAUSEA
     Dosage: TAKE 1 TABLET 3 TIMES A DAY AS NEEDED
     Route: 048
     Dates: start: 20071219
  19. ZOFRAN [Concomitant]
     Active Substance: ONDANSETRON HYDROCHLORIDE
     Indication: NAUSEA
     Dosage: T 1 TAB PO Q6H PRN
     Route: 048
     Dates: start: 20110506
  20. ELAVIL [Concomitant]
     Active Substance: AMITRIPTYLINE HYDROCHLORIDE
     Dosage: TAKE ONE TAB PO QHS
     Route: 048
     Dates: start: 20030224
  21. ATENOLOL. [Concomitant]
     Active Substance: ATENOLOL
     Route: 048
     Dates: start: 20051212
  22. HYDROCODONE?ACETAMINOPHEN [Concomitant]
     Active Substance: ACETAMINOPHEN\HYDROCODONE
     Dosage: SMG/500MG?TAKE 1 OR 2 TABS Q4?6H PRN
     Route: 048
     Dates: start: 20060612
  23. INSULIN DETEMIR [Concomitant]
     Active Substance: INSULIN DETEMIR
     Dosage: SUBACUTANEOUS SOLUTION 100 UNIT/ML,53 UNITS AT BEDTIME
  24. TRAMADOL HYDROCHLORIDE. [Concomitant]
     Active Substance: TRAMADOL HYDROCHLORIDE
     Route: 048
     Dates: start: 20110428
  25. METFORMIN [Concomitant]
     Active Substance: METFORMIN HYDROCHLORIDE
     Dosage: GLUCOPHAGE? TAKE ONE TAB PO BID
     Route: 048
     Dates: start: 20060530
  26. ACETAMINOPHEN. [Concomitant]
     Active Substance: ACETAMINOPHEN
     Dosage: TAKE 2 TABLETS EVERY 4?6 HOURS AS NEEDED
     Route: 048
     Dates: start: 20050815
  27. FLONASE [Concomitant]
     Active Substance: FLUTICASONE PROPIONATE
     Dosage: 50MCG SPRA? USE ONE SQUIRT IN EACH NOSTRIL DAILY
     Dates: start: 20000718
  28. LYRICA [Concomitant]
     Active Substance: PREGABALIN
     Route: 048
     Dates: start: 20080317
  29. AZITHROMYCIN ANHYDROUS. [Concomitant]
     Active Substance: AZITHROMYCIN ANHYDROUS
     Dosage: (Z?PAK EQ)??PO 250MG TAB KIT? 2 TABS PO ON DAY ONE THEN 1 TABLET DAILY UNTIL GONE
     Route: 048
     Dates: start: 20091028
  30. PENICILLIN VK [Concomitant]
     Active Substance: PENICILLIN V POTASSIUM
     Dosage: T 2 TAB PO NOW, THEN TAKE 1 TAB PO Q6H TAT
     Route: 048
     Dates: start: 20110328
  31. SALSALATE. [Concomitant]
     Active Substance: SALSALATE
     Route: 048
     Dates: start: 20000615
  32. CLOTRIMAZOLE. [Concomitant]
     Active Substance: CLOTRIMAZOLE
     Dates: start: 20010314
  33. DARVOCET [Concomitant]
     Active Substance: ACETAMINOPHEN\PROPOXYPHENE HYDROCHLORIDE
  34. ACIPHEX [Suspect]
     Active Substance: RABEPRAZOLE SODIUM
     Route: 065
     Dates: start: 1993, end: 2012
  35. ZANTAC [Concomitant]
     Active Substance: RANITIDINE HYDROCHLORIDE
     Dosage: GENERIC RANITIDINE
     Dates: start: 2016
  36. VENLAFAXINE HYDROCHLORIDE. [Concomitant]
     Active Substance: VENLAFAXINE HYDROCHLORIDE
     Route: 048
     Dates: start: 20101118
  37. SINGULAIR [Concomitant]
     Active Substance: MONTELUKAST SODIUM
     Route: 048
  38. MUCINEX [Concomitant]
     Active Substance: GUAIFENESIN
     Dosage: AS NEEDED
     Route: 048
  39. CHROMIUM PICOLINATE [Concomitant]
     Active Substance: CHROMIUM PICOLINATE
     Route: 048
  40. LASIX [Concomitant]
     Active Substance: FUROSEMIDE
     Dosage: TD FOR 7 DAYS
     Route: 048
     Dates: start: 20051017
  41. DIPHENHYDRAMINE. [Concomitant]
     Active Substance: DIPHENHYDRAMINE
     Dosage: TAKE 1 OR 2 CAPS Q6?SH PRN
     Route: 048
     Dates: start: 20000126
  42. BACITRACIN. [Concomitant]
     Active Substance: BACITRACIN
     Dosage: TOP SOOUNIT/GM OINT GM? APPLY AS DIRECTED
     Dates: start: 20000202
  43. LEVAQUIN [Concomitant]
     Active Substance: LEVOFLOXACIN
     Route: 048
     Dates: start: 20000322
  44. AMOXICILLIN. [Concomitant]
     Active Substance: AMOXICILLIN
     Dosage: 250MG/5ML SUSR ML
     Route: 048
     Dates: start: 20000414
  45. ROFECOXIB [Concomitant]
     Active Substance: ROFECOXIB
     Indication: ARTHRITIS
     Route: 048
     Dates: start: 20010107
  46. TERBINAFINE. [Concomitant]
     Active Substance: TERBINAFINE
     Dosage: LAMISIL OR SUB
     Route: 048
     Dates: start: 20000927
  47. VALIUM [Concomitant]
     Active Substance: DIAZEPAM
     Route: 048
     Dates: start: 20011201
  48. PROVIGIL [Concomitant]
     Active Substance: MODAFINIL
     Route: 048
     Dates: start: 20041026
  49. PRILOSEC [Suspect]
     Active Substance: OMEPRAZOLE MAGNESIUM
     Indication: GASTROOESOPHAGEAL REFLUX DISEASE
     Route: 048
     Dates: start: 1993, end: 2012
  50. PRILOSEC [Suspect]
     Active Substance: OMEPRAZOLE MAGNESIUM
     Indication: GASTROOESOPHAGEAL REFLUX DISEASE
     Dosage: GENERIC OMEPRAZOLETAKE ONE EVERYDAY
     Route: 048
     Dates: start: 20101118
  51. ZANTAC [Concomitant]
     Active Substance: RANITIDINE HYDROCHLORIDE
     Dosage: 150 (PRESCRIPTION)
  52. ZYRTEC [Concomitant]
     Active Substance: CETIRIZINE HYDROCHLORIDE
     Dosage: CETIRIZINE
     Route: 048
     Dates: start: 20060313
  53. HYDROCHLOROTHIAZIDE. [Concomitant]
     Active Substance: HYDROCHLOROTHIAZIDE
     Route: 048
     Dates: start: 20000816
  54. NIFEDIPINE. [Concomitant]
     Active Substance: NIFEDIPINE
     Route: 048
     Dates: start: 20050815
  55. ADVAIR HFA [Concomitant]
     Active Substance: FLUTICASONE PROPIONATE\SALMETEROL XINAFOATE
     Dosage: INH 250MCG/50MCG INH 60 DISKS/PKG, INHALE 1 PUFF PO BID
     Dates: start: 20081121
  56. LORATADINE. [Concomitant]
     Active Substance: LORATADINE
     Route: 048
     Dates: start: 20000126
  57. GLUCOTROL [Concomitant]
     Active Substance: GLIPIZIDE
     Route: 048
     Dates: start: 20011203
  58. NEURONTIN [Concomitant]
     Active Substance: GABAPENTIN
     Indication: PAIN IN EXTREMITY
     Dosage: TAKE ONE CAPSULE AT BEDTIME
     Route: 048
     Dates: start: 20020127
  59. PRILOSEC [Suspect]
     Active Substance: OMEPRAZOLE MAGNESIUM
     Indication: GASTROOESOPHAGEAL REFLUX DISEASE
     Route: 048
     Dates: start: 20000805
  60. PREVACID [Suspect]
     Active Substance: LANSOPRAZOLE
     Route: 048
     Dates: start: 20050815
  61. ZOCOR [Concomitant]
     Active Substance: SIMVASTATIN
     Dosage: SIMVASTATIN
     Route: 048
     Dates: start: 20050123
  62. FELODIPINE. [Concomitant]
     Active Substance: FELODIPINE
     Indication: BLOOD PRESSURE ABNORMAL
     Route: 048
     Dates: start: 20070626
  63. POTASSIUM CHLORIDE. [Concomitant]
     Active Substance: POTASSIUM CHLORIDE
     Route: 048
  64. POTASSIUM CHLORIDE. [Concomitant]
     Active Substance: POTASSIUM CHLORIDE
     Route: 048
     Dates: start: 20101007
  65. MUCINEX [Concomitant]
     Active Substance: GUAIFENESIN
     Dosage: GUAIFENESIN?AS NEEDED
     Route: 048
     Dates: start: 20000217
  66. METFORMIN [Concomitant]
     Active Substance: METFORMIN HYDROCHLORIDE
     Route: 048
     Dates: start: 20050329
  67. GLIMEPIRIDE. [Concomitant]
     Active Substance: GLIMEPIRIDE
     Dosage: AMARYL OR SUB? TAKE ONE TAB PO DAILY. INCREASE TO BID IN TWO WEEKS
     Route: 048
     Dates: start: 20090330
  68. CIPROFLOXACIN. [Concomitant]
     Active Substance: CIPROFLOXACIN
     Route: 048
     Dates: start: 20100930
  69. PRILOSEC [Suspect]
     Active Substance: OMEPRAZOLE MAGNESIUM
     Indication: GASTROOESOPHAGEAL REFLUX DISEASE
     Route: 048
     Dates: start: 20000816
  70. PREVACID [Suspect]
     Active Substance: LANSOPRAZOLE
     Route: 065
     Dates: start: 1993, end: 2012
  71. LISINOPRIL. [Concomitant]
     Active Substance: LISINOPRIL
     Route: 048
     Dates: start: 20051212
  72. NOVOLOG [Concomitant]
     Active Substance: INSULIN ASPART
     Dosage: FLEXPEN SUBCUATANEOUS SOLUTION 100 UNIT/ML, 10?16 UNITS BEFORE MEALS
     Dates: start: 20080307
  73. INSULIN DETEMIR [Concomitant]
     Active Substance: INSULIN DETEMIR
     Dosage: LEVEMIR? PEN SQ 100U/ML, TAKE AS DIRECTED
     Dates: start: 20080718
  74. ALBUTEROL. [Concomitant]
     Active Substance: ALBUTEROL
     Dosage: 90MCG^/ACT ALEROSOL SOLN, INHALATION AS NEEDED
     Route: 048
  75. LANTUS [Concomitant]
     Active Substance: INSULIN GLARGINE
     Dosage: 100UNIT/ML SOLUTION, SUBACUTANEOUS AS NEEDED
     Dates: start: 20071219
  76. VITAMIN D [Concomitant]
     Active Substance: CHOLECALCIFEROL
     Dosage: 2000 UNIT, 1 ORAL DAILY
     Route: 048
     Dates: start: 20110926
  77. ACETAMINOPHEN. [Concomitant]
     Active Substance: ACETAMINOPHEN
     Dosage: TAKE 2 TABLETS EVERY 4?6 HOURS AS NEEDED
     Route: 048
     Dates: start: 20050815
  78. AVANDIA [Concomitant]
     Active Substance: ROSIGLITAZONE MALEATE
     Route: 048
     Dates: start: 20030410
  79. EXENATIDE. [Concomitant]
     Active Substance: EXENATIDE
     Dosage: PEN?SQ SMCG/0.02ML INJ 1.2ML/PEN? INJECT SQ BID
     Dates: start: 20070820
  80. CYCLOBENZAPRINE. [Concomitant]
     Active Substance: CYCLOBENZAPRINE
     Route: 048
     Dates: start: 20100523
  81. PERCOCET [Concomitant]
     Active Substance: ACETAMINOPHEN\OXYCODONE HYDROCHLORIDE
     Dosage: 5MG/325MG?TAKE 1?2 TABS Q4?6H PP
     Route: 048
     Dates: start: 20020122
  82. GLYNASE [Concomitant]
     Active Substance: GLYBURIDE
     Dosage: TAKE 1/2 TABLET PO
     Route: 048
     Dates: start: 20030224
  83. ACIPHEX [Suspect]
     Active Substance: RABEPRAZOLE SODIUM
     Route: 048
     Dates: start: 20020127
  84. TIZANIDINE HYDROCHLORIDE. [Concomitant]
     Active Substance: TIZANIDINE HYDROCHLORIDE
     Route: 048
  85. ZOCOR [Concomitant]
     Active Substance: SIMVASTATIN
     Route: 048
     Dates: start: 20101118
  86. LISINOPRIL. [Concomitant]
     Active Substance: LISINOPRIL
     Route: 048
     Dates: start: 20010809
  87. PLAVIX [Concomitant]
     Active Substance: CLOPIDOGREL BISULFATE
     Route: 048
     Dates: start: 20101118
  88. AMBIEN [Concomitant]
     Active Substance: ZOLPIDEM TARTRATE
     Dosage: ZOLPIDEM
     Route: 048
     Dates: start: 20110120
  89. BIOTIN [Concomitant]
     Active Substance: BIOTIN
     Route: 048
  90. NORTRIPTYLINE [Concomitant]
     Active Substance: NORTRIPTYLINE
     Indication: NEURALGIA
     Dosage: 1 CAP PO HS FOR NEUROPATHIC PAIN. MAY INCREASE TO 2 CAPS PO HS
     Route: 048
     Dates: start: 20110216
  91. LEVSIN [Concomitant]
     Active Substance: HYOSCYAMINE SULFATE
     Indication: ABDOMINAL PAIN
     Dosage: TAKE ONE TAB SL Q 4 HRS PRN
     Route: 048
     Dates: start: 20020108
  92. GLYNASE [Concomitant]
     Active Substance: GLYBURIDE
     Dosage: GLYBURIDE? 1 DF DAILY
     Route: 048
     Dates: start: 20030224

REACTIONS (2)
  - Chronic kidney disease [Not Recovered/Not Resolved]
  - Mental disorder [Unknown]

NARRATIVE: CASE EVENT DATE: 2004
